FAERS Safety Report 5932562-7 (Version None)
Quarter: 2008Q4

REPORT INFORMATION
  Report Type: 
  Country: None (occurrence: None)
  Receive Date: 20081023
  Receipt Date: 20060626
  Transmission Date: 20090506
  Serious: Yes (Life-Threatening, Other)
  Sender: FDA-Public Use
  Company Number: 2006AL002133

PATIENT
  Sex: Female

DRUGS (2)
  1. CITALOPRAM HYDROBROMIDE [Suspect]
     Indication: DEPRESSION
     Dosage: 10 MG,PO
     Route: 048
     Dates: start: 20060127, end: 20060401
  2. ZOPICLONE [Concomitant]

REACTIONS (1)
  - SUICIDAL IDEATION [None]
